FAERS Safety Report 5993845-8 (Version None)
Quarter: 2008Q4

REPORT INFORMATION
  Report Type: 
  Country: None (occurrence: None)
  Receive Date: 20081212
  Receipt Date: 20081029
  Transmission Date: 20090506
  Serious: No
  Sender: FDA-Public Use
  Company Number: PR-ABBOTT-08P-131-0485925-00

PATIENT
  Sex: Female
  Weight: 81.72 kg

DRUGS (9)
  1. HUMIRA [Suspect]
     Indication: RHEUMATOID ARTHRITIS
     Route: 058
     Dates: start: 20070101, end: 20080401
  2. ALENDRONATE SODIUM [Concomitant]
     Indication: OSTEOPOROSIS
     Route: 048
  3. METHOTREXATE [Concomitant]
     Indication: RHEUMATOID ARTHRITIS
     Route: 048
  4. FOLIC ACID [Concomitant]
     Indication: RHEUMATOID ARTHRITIS
     Dosage: 1 TABLET
     Route: 048
  5. VIT. COMPLEX B [Concomitant]
     Indication: VITAMIN SUPPLEMENTATION
     Route: 048
  6. CENTRUM [Concomitant]
     Indication: VITAMIN SUPPLEMENTATION
     Route: 048
  7. ACETYLSALICYLIC ACID SRT [Concomitant]
     Indication: SUPPLEMENTATION THERAPY
     Route: 048
  8. GLIPIZIDE [Concomitant]
     Indication: DIABETES MELLITUS
     Route: 048
  9. VASERETIC [Concomitant]
     Indication: HYPERTENSION
     Route: 048

REACTIONS (3)
  - INFLAMMATION [None]
  - PRURITUS [None]
  - RASH [None]
